FAERS Safety Report 17068119 (Version 1)
Quarter: 2019Q4

REPORT INFORMATION
  Report Type: Spontaneous
  Country: GB (occurrence: GB)
  Receive Date: 20191122
  Receipt Date: 20191122
  Transmission Date: 20200122
  Serious: Yes (Life-Threatening, Hospitalization, Other)
  Sender: FDA-Public Use
  Company Number: GB-ALLERGAN-1947342US

PATIENT
  Sex: Male
  Weight: 97 kg

DRUGS (3)
  1. LORAZEPAM. [Concomitant]
     Active Substance: LORAZEPAM
     Indication: POST-TRAUMATIC STRESS DISORDER
     Dosage: EVERY 5-7DAYS, ONCE
     Route: 048
     Dates: start: 20170701
  2. CITALOPRAM HYDROBROMIDE - BP [Suspect]
     Active Substance: CITALOPRAM HYDROBROMIDE
     Indication: PRODUCT USED FOR UNKNOWN INDICATION
     Dosage: CANNOT REMEMBER
     Route: 048
     Dates: start: 20160201, end: 20160203
  3. PROMAZINE [Suspect]
     Active Substance: PROMAZINE
     Indication: BIPOLAR DISORDER
     Route: 048
     Dates: start: 20171001, end: 20171101

REACTIONS (5)
  - Intentional self-injury [Unknown]
  - Anaphylactic shock [Recovered/Resolved]
  - Suicidal ideation [Unknown]
  - Psychotic disorder [Recovered/Resolved]
  - Amnesia [Unknown]

NARRATIVE: CASE EVENT DATE: 201602
